FAERS Safety Report 7164408-6 (Version None)
Quarter: 2010Q4

REPORT INFORMATION
  Report Type: 
  Country: None (occurrence: None)
  Receive Date: 20101201
  Receipt Date: 20101122
  Transmission Date: 20110411
  Serious: Yes (Hospitalization)
  Sender: FDA-Public Use
  Company Number: OMPQ-PR-1011S-1019

PATIENT
  Age: 52 Year
  Sex: Female

DRUGS (1)
  1. OMNIPAQUE 140 [Suspect]
     Indication: ANEURYSM
     Dosage: 225 ML, SINGLE DOSE, I.A.
     Route: 014
     Dates: start: 20101117, end: 20101117

REACTIONS (5)
  - CONFUSIONAL STATE [None]
  - CONTRAST MEDIA REACTION [None]
  - ENCEPHALOPATHY [None]
  - LETHARGY [None]
  - VIITH NERVE PARALYSIS [None]
